FAERS Safety Report 8413518-1 (Version None)
Quarter: 2012Q2

REPORT INFORMATION
  Report Type: 
  Country: None (occurrence: None)
  Receive Date: 20120605
  Receipt Date: 20120124
  Transmission Date: 20120825
  Serious: Yes (Other)
  Sender: FDA-Public Use
  Company Number: CA-GLAXOSMITHKLINE-A0962799A

PATIENT
  Sex: Female
  Weight: 52.3 kg

DRUGS (8)
  1. ADVAIR DISKUS 100/50 [Suspect]
     Indication: CHRONIC OBSTRUCTIVE PULMONARY DISEASE
     Dosage: 1PUFF PER DAY
     Route: 055
     Dates: start: 20090101
  2. VENTOLIN [Concomitant]
     Route: 065
  3. ATROVENT [Concomitant]
     Route: 065
     Dates: start: 20120101
  4. ANTIBIOTIC [Concomitant]
     Route: 065
  5. ROFLUMILAST [Concomitant]
     Route: 065
     Dates: start: 20120101
  6. FOSAMAX [Concomitant]
     Route: 065
     Dates: start: 20120101
  7. PREDNISONE [Concomitant]
     Route: 065
     Dates: start: 20120501
  8. SPIRIVA [Concomitant]
     Route: 065

REACTIONS (7)
  - MALAISE [None]
  - SPUTUM DISCOLOURED [None]
  - ARTHRALGIA [None]
  - BACK PAIN [None]
  - PRODUCTIVE COUGH [None]
  - MULTIPLE FRACTURES [None]
  - OSTEOPOROSIS [None]
